FAERS Safety Report 9459072 (Version 1)
Quarter: 2013Q3

REPORT INFORMATION
  Report Type: Report from Study
  Country: BR (occurrence: BR)
  Receive Date: 20130814
  Receipt Date: 20130814
  Transmission Date: 20140515
  Serious: Yes (Other)
  Sender: FDA-Public Use
  Company Number: BR-ABBOTT-13P-020-1111535-00

PATIENT
  Sex: Male
  Weight: 72 kg

DRUGS (13)
  1. HUMIRA [Suspect]
     Indication: PSORIASIS
     Dosage: WEEK 0
     Route: 058
     Dates: start: 201304
  2. HUMIRA [Suspect]
     Dosage: WEEK ONE
     Route: 058
  3. HUMIRA [Suspect]
     Route: 058
  4. HUMIRA [Suspect]
     Route: 058
     Dates: start: 20130807
  5. HYDROCHLOROTHIAZIDE [Concomitant]
     Indication: HYPERTENSION
     Route: 048
  6. AMLODIPINE [Concomitant]
     Indication: HYPERTENSION
     Route: 048
  7. ARADOIS [Concomitant]
     Indication: HYPERTENSION
  8. MONOCORDIL [Concomitant]
     Indication: HYPERTENSION
     Route: 048
     Dates: start: 201305
  9. NEBIVOLOL HYDROCHLORIDE [Concomitant]
     Indication: HYPERTENSION
     Route: 048
  10. ATORVASTATIN | LOVASTATIN| YEAST EXTRACT FROM MONASCUS PURPUREUS [Concomitant]
     Indication: HYPERTENSION
     Dosage: (LIPISTAT)
     Route: 048
     Dates: start: 201305
  11. ATENOLOL [Concomitant]
     Indication: PRODUCT USED FOR UNKNOWN INDICATION
  12. PROLOPA [Concomitant]
     Indication: PRODUCT USED FOR UNKNOWN INDICATION
  13. SIMVASTATIN [Concomitant]
     Indication: PRODUCT USED FOR UNKNOWN INDICATION

REACTIONS (5)
  - Coronary artery occlusion [Unknown]
  - Carotid arteriosclerosis [Unknown]
  - Arterial occlusive disease [Unknown]
  - Arteriosclerosis [Unknown]
  - Coronary artery disease [Unknown]
